FAERS Safety Report 24578092 (Version 1)
Quarter: 2024Q4

REPORT INFORMATION
  Report Type: Spontaneous
  Country: DE (occurrence: DE)
  Receive Date: 20241104
  Receipt Date: 20241104
  Transmission Date: 20250115
  Serious: Yes (Other)
  Sender: BIOGEN
  Company Number: DE-BIOGEN-2024BI01288671

PATIENT
  Age: 36 Year
  Sex: Male
  Weight: 79 kg

DRUGS (1)
  1. TECFIDERA [Suspect]
     Active Substance: DIMETHYL FUMARATE
     Indication: Multiple sclerosis
     Dosage: MAINTENANCE DOSE
     Route: 050
     Dates: start: 201402, end: 202002

REACTIONS (1)
  - Oral papilloma [Recovered/Resolved]
